FAERS Safety Report 20005633 (Version 1)
Quarter: 2021Q4

REPORT INFORMATION
  Report Type: Spontaneous
  Country: JP (occurrence: JP)
  Receive Date: 20211027
  Receipt Date: 20211027
  Transmission Date: 20220303
  Serious: Yes (Death, Hospitalization, Other)
  Sender: FDA-Public Use
  Company Number: JP-BRISTOL-MYERS SQUIBB COMPANY-BMS-2021-109681

PATIENT
  Age: 77 Year
  Sex: Male

DRUGS (2)
  1. HYDREA [Suspect]
     Active Substance: HYDROXYUREA
     Indication: Myelodysplastic syndrome
     Dosage: UNK
     Route: 048
     Dates: start: 202003
  2. HYDREA [Suspect]
     Active Substance: HYDROXYUREA
     Indication: Myeloproliferative neoplasm

REACTIONS (9)
  - Infarction [Fatal]
  - Disseminated mucormycosis [Fatal]
  - Renal failure [Unknown]
  - Cardiac failure [Unknown]
  - Decreased appetite [Unknown]
  - Nausea [Unknown]
  - Malaise [Unknown]
  - Back pain [Unknown]
  - Off label use [Unknown]

NARRATIVE: CASE EVENT DATE: 20201001
